FAERS Safety Report 5529736-6 (Version None)
Quarter: 2007Q4

REPORT INFORMATION
  Report Type: 
  Country: None (occurrence: None)
  Receive Date: 20071129
  Receipt Date: 20071119
  Transmission Date: 20080405
  Serious: Yes (Other)
  Sender: FDA-Public Use
  Company Number: DE-ABBOTT-07P-062-0425132-00

PATIENT
  Age: 52 Year
  Sex: Female

DRUGS (2)
  1. ERGENYL LABAZ TABLETS [Suspect]
     Indication: EPILEPSY
     Route: 048
  2. ESTROGENS [Interacting]
     Indication: DRUG USE FOR UNKNOWN INDICATION
     Route: 048

REACTIONS (3)
  - CONVULSION [None]
  - DRUG INEFFECTIVE [None]
  - DRUG INTERACTION [None]
